FAERS Safety Report 18241440 (Version 2)
Quarter: 2020Q3

REPORT INFORMATION
  Report Type: Spontaneous
  Country: DE (occurrence: DE)
  Receive Date: 20200908
  Receipt Date: 20200921
  Transmission Date: 20201103
  Serious: Yes (Hospitalization, Other)
  Sender: FDA-Public Use
  Company Number: DE-SA-2020SA241542

PATIENT

DRUGS (1)
  1. LEMTRADA [Suspect]
     Active Substance: ALEMTUZUMAB
     Indication: MULTIPLE SCLEROSIS
     Dosage: 12 MG, QD
     Route: 041
     Dates: start: 20150402, end: 20150406

REACTIONS (6)
  - Blood loss anaemia [Recovered/Resolved]
  - Gastrointestinal haemorrhage [Unknown]
  - Duodenal ulcer [Unknown]
  - Pyelonephritis [Not Recovered/Not Resolved]
  - Peptic ulcer [Unknown]
  - Neurodermatitis [Unknown]

NARRATIVE: CASE EVENT DATE: 201507
